FAERS Safety Report 7553139-6 (Version None)
Quarter: 2011Q2

REPORT INFORMATION
  Report Type: 
  Country: None (occurrence: None)
  Receive Date: 20110616
  Receipt Date: 20110603
  Transmission Date: 20111010
  Serious: Yes (Life-Threatening, Hospitalization)
  Sender: FDA-Public Use
  Company Number: GB-MYLANLABS-2011S1007689

PATIENT
  Age: 24 Year
  Sex: Male

DRUGS (2)
  1. AZATHIOPRINE [Suspect]
     Indication: ECZEMA
     Dates: start: 20091127, end: 20101003
  2. ALBUTEROL [Concomitant]
     Indication: ASTHMA
     Route: 055

REACTIONS (7)
  - PANCYTOPENIA [None]
  - BONE MARROW FAILURE [None]
  - DIARRHOEA [None]
  - ESCHERICHIA BACTERAEMIA [None]
  - OROPHARYNGEAL PAIN [None]
  - CAECITIS [None]
  - SEPSIS [None]
